FAERS Safety Report 5715310-5 (Version None)
Quarter: 2008Q2

REPORT INFORMATION
  Report Type: 
  Country: None (occurrence: None)
  Receive Date: 20080423
  Receipt Date: 20080411
  Transmission Date: 20081010
  Serious: Yes (Other)
  Sender: FDA-Public Use
  Company Number: CA-PFIZER INC-2008028986

PATIENT
  Age: 46 Year
  Sex: Male

DRUGS (6)
  1. CHAMPIX [Suspect]
  2. ARTHROTEC [Concomitant]
  3. CITALOPRAM HYDROBROMIDE [Concomitant]
  4. VALSARTAN [Concomitant]
  5. LIPITOR [Concomitant]
  6. ZYPREXA [Concomitant]

REACTIONS (5)
  - CONFUSIONAL STATE [None]
  - DEPRESSION [None]
  - FATIGUE [None]
  - FEELING ABNORMAL [None]
  - SUICIDAL IDEATION [None]
